FAERS Safety Report 21826836 (Version 1)
Quarter: 2023Q1

REPORT INFORMATION
  Report Type: Report from Study
  Country: US (occurrence: US)
  Receive Date: 20230106
  Receipt Date: 20230106
  Transmission Date: 20230417
  Serious: No
  Sender: FDA-Public Use
  Company Number: US-ABBVIE-4256951

PATIENT
  Age: 37 Year
  Sex: Male

DRUGS (2)
  1. HUMIRA [Suspect]
     Active Substance: ADALIMUMAB
     Indication: Colitis ulcerative
     Dosage: STRENGTH 40 MG
     Route: 058
     Dates: start: 20221229, end: 20221229
  2. HUMIRA [Suspect]
     Active Substance: ADALIMUMAB
     Dosage: STRENGTH 40 MG
     Route: 058

REACTIONS (2)
  - Abdominal rigidity [Recovered/Resolved]
  - Muscle twitching [Unknown]

NARRATIVE: CASE EVENT DATE: 20230101
